FAERS Safety Report 9224592 (Version 1)
Quarter: 2013Q2

REPORT INFORMATION
  Report Type: Spontaneous
  Country: US (occurrence: None)
  Receive Date: 20130411
  Receipt Date: 20130411
  Transmission Date: 20140414
  Serious: Yes (Hospitalization)
  Sender: FDA-Public Use
  Company Number: None

PATIENT
  Age: 55 Year
  Sex: Male
  Weight: 113.2 kg

DRUGS (13)
  1. WARFARIN 5MG PO DAILY [Suspect]
     Indication: MYOCARDIAL INFARCTION
     Route: 048
  2. ASA [Suspect]
     Indication: PLASMA CELL MYELOMA
     Dosage: 81MG DAILY PO
     Route: 048
  3. DEXAMETHASONE [Suspect]
     Indication: POSTOPERATIVE CARE
     Dosage: 40MG Q WEEKLY PO
     Route: 048
  4. ACTOS [Concomitant]
  5. ADVAIR DISCUS [Concomitant]
  6. LOTREL [Concomitant]
  7. LASIX [Concomitant]
  8. FISH OIL [Concomitant]
  9. OMEPRAZOLE [Concomitant]
  10. KCL [Concomitant]
  11. REVLIMID [Concomitant]
  12. ZOCOR [Concomitant]
  13. METFORMIN [Concomitant]

REACTIONS (9)
  - Upper gastrointestinal haemorrhage [None]
  - Duodenal ulcer [None]
  - Erosive duodenitis [None]
  - Coagulopathy [None]
  - International normalised ratio increased [None]
  - Haemorrhagic anaemia [None]
  - Renal failure acute [None]
  - Electrolyte imbalance [None]
  - Drug interaction [None]
